FAERS Safety Report 11149756 (Version 1)
Quarter: 2015Q2

REPORT INFORMATION
  Report Type: Spontaneous
  Country: CN (occurrence: CN)
  Receive Date: 20150529
  Receipt Date: 20150529
  Transmission Date: 20150821
  Serious: Yes (Hospitalization)
  Sender: FDA-Public Use
  Company Number: CN-ELI_LILLY_AND_COMPANY-CN201505007462

PATIENT
  Age: 80 Year
  Sex: Female

DRUGS (9)
  1. HUMULIN N [Suspect]
     Active Substance: INSULIN HUMAN
     Indication: DIABETES MELLITUS
     Dosage: 16 U, QD
     Route: 058
     Dates: start: 201504, end: 20150517
  2. HUMULIN R [Suspect]
     Active Substance: INSULIN HUMAN
     Dosage: 4 U, QD
     Route: 058
     Dates: end: 20150517
  3. HUMULIN R [Suspect]
     Active Substance: INSULIN HUMAN
     Dosage: 10 U, EACH EVENING
     Route: 058
     Dates: end: 20150517
  4. XIN KANG [Concomitant]
     Indication: CORONARY ARTERY DISEASE
     Dosage: 1 DF, TID
     Route: 048
     Dates: start: 201505
  5. ADALAT [Concomitant]
     Active Substance: NIFEDIPINE
     Indication: BLOOD PRESSURE INCREASED
     Dosage: 1 DF, TID
     Route: 048
     Dates: start: 201505
  6. DIOVAN [Concomitant]
     Active Substance: VALSARTAN
     Indication: BLOOD PRESSURE INCREASED
     Dosage: 1 DF, TID
     Route: 048
     Dates: start: 201505
  7. HUMULIN R [Suspect]
     Active Substance: INSULIN HUMAN
     Indication: DIABETES MELLITUS
     Dosage: 16 U, EACH MORNING
     Route: 058
     Dates: end: 20150517
  8. PITAVASTATIN CALCIUM [Concomitant]
     Active Substance: PITAVASTATIN CALCIUM
     Indication: LIPIDS INCREASED
     Dosage: 1 DF, TID
     Route: 048
     Dates: start: 201505
  9. VITAMIN B1 NOS [Concomitant]
     Indication: NERVOUS SYSTEM DISORDER
     Dosage: UNK
     Dates: start: 201505

REACTIONS (3)
  - Blood glucose increased [Not Recovered/Not Resolved]
  - Drug dose omission [Unknown]
  - Diabetic foot [Not Recovered/Not Resolved]
